FAERS Safety Report 20852707 (Version 1)
Quarter: 2022Q2

REPORT INFORMATION
  Report Type: Spontaneous
  Country: US (occurrence: US)
  Receive Date: 20220520
  Receipt Date: 20220520
  Transmission Date: 20220720
  Serious: Yes (Life-Threatening, Hospitalization, Other)
  Sender: FDA-Public Use
  Company Number: US-BRISTOL-MYERS SQUIBB COMPANY-2022-040692

PATIENT
  Age: 79 Year
  Sex: Male

DRUGS (8)
  1. ELIQUIS [Suspect]
     Active Substance: APIXABAN
     Indication: Peripheral ischaemia
     Route: 048
     Dates: start: 20210907
  2. TOZINAMERAN [Suspect]
     Active Substance: TOZINAMERAN
     Indication: COVID-19 immunisation
     Dosage: LEFT DELTOID
     Route: 030
     Dates: start: 20210128
  3. TOZINAMERAN [Suspect]
     Active Substance: TOZINAMERAN
     Dosage: RIGHT DELTOID
     Route: 030
     Dates: start: 20210219
  4. TOZINAMERAN [Suspect]
     Active Substance: TOZINAMERAN
     Dosage: LEFT DELTOID
     Route: 030
     Dates: start: 20211102
  5. PLAVIX [Concomitant]
     Active Substance: CLOPIDOGREL BISULFATE
     Indication: Peripheral ischaemia
     Route: 048
     Dates: start: 20210907
  6. LIPITOR [Concomitant]
     Active Substance: ATORVASTATIN CALCIUM
     Indication: Peripheral ischaemia
     Route: 048
     Dates: start: 20210907
  7. HYTRIN [Concomitant]
     Active Substance: TERAZOSIN HYDROCHLORIDE
     Indication: Prostate cancer
     Route: 048
     Dates: start: 2020
  8. FLUVAL AB [Concomitant]
     Dosage: LEFT ARM
     Route: 030
     Dates: start: 20211007

REACTIONS (1)
  - Myasthenia gravis crisis [Recovered/Resolved]

NARRATIVE: CASE EVENT DATE: 20211111
